FAERS Safety Report 21739098 (Version 1)
Quarter: 2022Q4

REPORT INFORMATION
  Report Type: Spontaneous
  Country: US (occurrence: None)
  Receive Date: 20221215
  Receipt Date: 20221215
  Transmission Date: 20230112
  Serious: No
  Sender: FDA-Public Use
  Company Number: None

PATIENT
  Age: 62 Year
  Sex: Male

DRUGS (1)
  1. OLOPATADINE [Suspect]
     Active Substance: OLOPATADINE
     Indication: Seasonal allergy
     Dates: start: 20220531, end: 20220715

REACTIONS (2)
  - Swelling of eyelid [None]
  - Eyelid pain [None]

NARRATIVE: CASE EVENT DATE: 20220716
